FAERS Safety Report 22049160 (Version 1)
Quarter: 2023Q1

REPORT INFORMATION
  Report Type: Spontaneous
  Country: US (occurrence: None)
  Receive Date: 20230228
  Receipt Date: 20230228
  Transmission Date: 20230417
  Serious: Yes (unspecified)
  Sender: FDA-Public Use
  Company Number: None

PATIENT
  Age: 38 Year
  Sex: Female
  Weight: 105.75 kg

DRUGS (9)
  1. LYBALVI [Suspect]
     Active Substance: OLANZAPINE\SAMIDORPHAN L-MALATE
     Indication: Bipolar I disorder
     Dosage: OTHER QUANTITY : 30 TABLET(S);?FREQUENCY : DAILY;?
     Route: 048
     Dates: start: 20230225, end: 20230226
  2. ARIPIPRAZOLE [Concomitant]
     Active Substance: ARIPIPRAZOLE
  3. LAMOTRIGINE [Concomitant]
     Active Substance: LAMOTRIGINE
  4. TOPIRAMATE [Concomitant]
     Active Substance: TOPIRAMATE
  5. VENLAFAXINE [Concomitant]
     Active Substance: VENLAFAXINE HYDROCHLORIDE
  6. HYDROXYZINE PAMOATE [Concomitant]
     Active Substance: HYDROXYZINE PAMOATE
  7. PRAZOSIN [Concomitant]
     Active Substance: PRAZOSIN
  8. LISINOPRIL [Concomitant]
     Active Substance: LISINOPRIL
  9. OZEMPIC [Concomitant]
     Active Substance: SEMAGLUTIDE

REACTIONS (7)
  - Lethargy [None]
  - Somnolence [None]
  - Self-injurious ideation [None]
  - Suicidal ideation [None]
  - Anger [None]
  - Tremor [None]
  - Anger [None]

NARRATIVE: CASE EVENT DATE: 20230226
